FAERS Safety Report 17203299 (Version 3)
Quarter: 2023Q4

REPORT INFORMATION
  Report Type: Spontaneous
  Country: US (occurrence: US)
  Receive Date: 20191226
  Receipt Date: 20231227
  Transmission Date: 20240110
  Serious: No
  Sender: FDA-Public Use
  Company Number: US-UPSHER-SMITH LABORATORIES, LLC-2019USL00664

PATIENT
  Sex: Female
  Weight: 95.238 kg

DRUGS (11)
  1. KLOR-CON M [Suspect]
     Active Substance: POTASSIUM CHLORIDE
     Indication: Hypokalaemia
     Dosage: 40 MEQ, 2X/DAY
     Route: 048
     Dates: start: 201908, end: 201908
  2. KLOR-CON M [Suspect]
     Active Substance: POTASSIUM CHLORIDE
     Dosage: 20 MEQ, 2X/DAY (WITH ONE ^OLD^ 20MEQ PILL)
     Route: 048
     Dates: start: 201908, end: 201908
  3. KLOR-CON M [Suspect]
     Active Substance: POTASSIUM CHLORIDE
     Dosage: 10 MEQ, 4X/DAY (WITH 1/2 OF ONE ^OLD^ 20MEQ PILL)
     Route: 048
     Dates: start: 201908, end: 201908
  4. KLOR-CON M [Suspect]
     Active Substance: POTASSIUM CHLORIDE
     Dosage: 10 MEQ MULTIPLE TIMES PER DAY UNTIL DOSES COMPLETED
     Route: 048
     Dates: start: 20190822, end: 2019
  5. KLOR-CON M [Suspect]
     Active Substance: POTASSIUM CHLORIDE
     Dosage: UNK
     Dates: start: 20191213, end: 20200112
  6. KLOR-CON M [Suspect]
     Active Substance: POTASSIUM CHLORIDE
     Dosage: 40 MEQ, 2X/DAY
     Route: 048
  7. INDAPAMIDE [Concomitant]
     Active Substance: INDAPAMIDE
  8. SPIRONOLACTONE [Concomitant]
     Active Substance: SPIRONOLACTONE
  9. OMEPRAZOLE [Concomitant]
     Active Substance: OMEPRAZOLE
  10. VITAMINS [Concomitant]
     Active Substance: VITAMINS
  11. WARFARIN [Concomitant]
     Active Substance: WARFARIN

REACTIONS (16)
  - Blood pressure increased [Recovering/Resolving]
  - Muscle spasms [Unknown]
  - Heart rate increased [Recovering/Resolving]
  - Palpitations [Unknown]
  - Gastrooesophageal reflux disease [Recovering/Resolving]
  - Gastrointestinal sounds abnormal [Unknown]
  - Insomnia [Recovering/Resolving]
  - Middle insomnia [Recovering/Resolving]
  - Dyspepsia [Recovered/Resolved]
  - Oesophageal pain [Recovered/Resolved]
  - Pollakiuria [Unknown]
  - Diarrhoea [Unknown]
  - Nausea [Recovering/Resolving]
  - Abdominal discomfort [Unknown]
  - Drug ineffective [Unknown]
  - Unevaluable event [Unknown]

NARRATIVE: CASE EVENT DATE: 20190101
